FAERS Safety Report 5142230-X (Version None)
Quarter: 2006Q4

REPORT INFORMATION
  Report Type: 
  Country: None (occurrence: None)
  Receive Date: 20061102
  Receipt Date: 20061030
  Transmission Date: 20070319
  Serious: Yes (Hospitalization)
  Sender: FDA-Public Use
  Company Number: 200615409EU

PATIENT
  Sex: Female

DRUGS (3)
  1. NICODERM [Suspect]
     Indication: SMOKING CESSATION THERAPY
     Route: 062
     Dates: start: 20030101, end: 20030101
  2. SEMISODIUM VALPROATE [Concomitant]
     Indication: BIPOLAR I DISORDER
     Route: 048
  3. CLONAZEPAM [Concomitant]
     Indication: BIPOLAR I DISORDER
     Dates: start: 19970101

REACTIONS (1)
  - MANIA [None]
